FAERS Safety Report 5614484-4 (Version None)
Quarter: 2008Q1

REPORT INFORMATION
  Report Type: 
  Country: None (occurrence: None)
  Receive Date: 20080130
  Receipt Date: 20080118
  Transmission Date: 20080703
  Serious: Yes (Hospitalization)
  Sender: FDA-Public Use
  Company Number: 230652J08USA

PATIENT
  Age: 51 Year
  Sex: Female
  Weight: 112.0385 kg

DRUGS (6)
  1. REBIF [Suspect]
     Indication: MULTIPLE SCLEROSIS
     Dosage: 44 MCG, 3 IN 1 WEEKS, SUBCUTANEOUS
     Route: 058
     Dates: start: 20030101
  2. BACLOFEN [Concomitant]
  3. BENICAR [Concomitant]
  4. PROVIGIL [Concomitant]
  5. ADVIL [Concomitant]
  6. GLUCOSAMINE (GLUCOSAMINE /00943601/) [Concomitant]

REACTIONS (4)
  - FATIGUE [None]
  - HYPERTENSION [None]
  - OSTEOARTHRITIS [None]
  - PROCEDURAL PAIN [None]
